FAERS Safety Report 9521812 (Version 4)
Quarter: 2014Q2

REPORT INFORMATION
  Report Type: Report from Study
  Country: AU (occurrence: AU)
  Receive Date: 20130913
  Receipt Date: 20140424
  Transmission Date: 20141212
  Serious: Yes (Hospitalization, Other)
  Sender: FDA-Public Use
  Company Number: PHHY2013AU097980

PATIENT
  Age: 63 Year
  Sex: Male

DRUGS (13)
  1. SIMULECT [Suspect]
     Indication: IMMUNOSUPPRESSION
     Dosage: 20 MG AND AGAIN ON DAY 4
  2. TACROLIMUS [Suspect]
     Indication: IMMUNOSUPPRESSION
     Dosage: 0.075 MG/KG, BID
  3. MYCOPHENOLATE MOFETIL [Concomitant]
     Indication: IMMUNOSUPPRESSION
     Dosage: 1 G, BID
  4. MYCOPHENOLATE MOFETIL [Concomitant]
     Dosage: 500 MG, BID
  5. PREDNISOLONE [Concomitant]
     Indication: IMMUNOSUPPRESSION
     Dosage: 30 MG, DAILY
     Route: 048
  6. PREDNISOLONE [Concomitant]
     Dosage: 50 MG, DAILY
  7. PREDNISOLONE [Concomitant]
     Dosage: 40 MG, DAILY
  8. PREDNISOLONE [Concomitant]
     Dosage: 20 MG, DAILY
  9. PREDNISOLONE [Concomitant]
     Dosage: 10 MG, DAILY
  10. TRIMETHOPRIM SULFAMETHOXAZOLE [Concomitant]
     Indication: PROPHYLAXIS
  11. AZATHIOPRINE [Concomitant]
     Indication: IMMUNOSUPPRESSION
     Dosage: 1.5 MG/KG, DAILY
  12. METHYLPREDNISOLONE [Concomitant]
     Indication: IMMUNOSUPPRESSION
     Dosage: 1 G, UNK
     Route: 042
  13. METHYLPREDNISOLONE [Concomitant]
     Dosage: 250 MG, DAILY
     Route: 042

REACTIONS (11)
  - Rheumatoid arthritis [Recovered/Resolved]
  - Mobility decreased [Unknown]
  - Arthralgia [Unknown]
  - Polyarthritis [Recovering/Resolving]
  - Arthropathy [Not Recovered/Not Resolved]
  - Joint effusion [Unknown]
  - Abasia [Unknown]
  - Angina unstable [Unknown]
  - Kidney transplant rejection [Recovered/Resolved]
  - Hyperglycaemia [Unknown]
  - Anaemia [Unknown]
